FAERS Safety Report 6875879-4 (Version None)
Quarter: 2010Q3

REPORT INFORMATION
  Report Type: 
  Country: None (occurrence: None)
  Receive Date: 20100727
  Receipt Date: 20070702
  Transmission Date: 20110219
  Serious: Yes (Hospitalization, Other)
  Sender: FDA-Public Use
  Company Number: US-PFIZER INC-2006102666

PATIENT
  Sex: Female
  Weight: 79.4 kg

DRUGS (7)
  1. CELEBREX [Suspect]
     Indication: BACK PAIN
     Dosage: FREQUENCY: 1-2X
     Dates: start: 19990226
  2. CELEBREX [Suspect]
     Indication: PAIN IN EXTREMITY
  3. CELEBREX [Suspect]
     Indication: OSTEOARTHRITIS
  4. CELEBREX [Suspect]
     Indication: RHEUMATOID ARTHRITIS
  5. VIOXX [Suspect]
     Indication: BACK PAIN
     Route: 048
     Dates: start: 19990601, end: 20001201
  6. VIOXX [Suspect]
     Indication: OSTEOARTHRITIS
  7. VIOXX [Suspect]
     Indication: RHEUMATOID ARTHRITIS

REACTIONS (3)
  - CEREBROVASCULAR ACCIDENT [None]
  - DEEP VEIN THROMBOSIS [None]
  - MYOCARDIAL INFARCTION [None]
